FAERS Safety Report 8039344-3 (Version None)
Quarter: 2012Q1

REPORT INFORMATION
  Report Type: 
  Country: None (occurrence: None)
  Receive Date: 20120111
  Receipt Date: 20111212
  Transmission Date: 20120608
  Serious: No
  Sender: FDA-Public Use
  Company Number: US-AMGEN-USASP2011066228

PATIENT
  Age: 61 Year
  Sex: Male

DRUGS (2)
  1. PNEUMOCOCCAL VACCINE [Concomitant]
     Dates: start: 20111205, end: 20111205
  2. ENBREL [Suspect]
     Indication: PSORIASIS
     Dosage: 50 MG, QWK
     Dates: start: 20040514

REACTIONS (2)
  - RESPIRATORY TRACT CONGESTION [None]
  - COUGH [None]
